FAERS Safety Report 14915719 (Version 1)
Quarter: 2018Q2

REPORT INFORMATION
  Report Type: Report from Study
  Country: US (occurrence: US)
  Receive Date: 20180518
  Receipt Date: 20180518
  Transmission Date: 20180711
  Serious: Yes (Hospitalization)
  Sender: FDA-Public Use
  Company Number: US-ACTELION-A-NJ2018-172147

PATIENT
  Age: 66 Year
  Sex: Female
  Weight: 89.8 kg

DRUGS (2)
  1. ADCIRCA [Concomitant]
     Active Substance: TADALAFIL
  2. VELETRI [Suspect]
     Active Substance: EPOPROSTENOL
     Indication: PULMONARY HYPERTENSION
     Dosage: 39 NG/KG, PER MIN
     Route: 042

REACTIONS (2)
  - Tibia fracture [Unknown]
  - Weight bearing difficulty [Unknown]
